FAERS Safety Report 7568841-X (Version None)
Quarter: 2011Q2

REPORT INFORMATION
  Report Type: 
  Country: None (occurrence: None)
  Receive Date: 20110623
  Receipt Date: 20110617
  Transmission Date: 20111010
  Serious: Yes (Death, Hospitalization, Other)
  Sender: FDA-Public Use
  Company Number: FR-BRISTOL-MYERS SQUIBB COMPANY-15722523

PATIENT
  Age: 75 Year
  Sex: Male
  Weight: 65 kg

DRUGS (7)
  1. IMOVANE [Concomitant]
     Indication: INSOMNIA
     Dosage: 1DF=1 TABLET
     Route: 048
  2. FORLAX [Concomitant]
     Indication: CONSTIPATION
     Dosage: 1DF=3 SACHETS.
     Route: 048
  3. DEBRIDAT [Concomitant]
     Indication: CONSTIPATION
     Dosage: 1DF=3 TABLETS
     Route: 048
  4. IPILIMUMAB [Suspect]
     Indication: MALIGNANT MELANOMA
     Dosage: INFUSION:1
     Dates: start: 20110429
  5. ALDACTONE [Concomitant]
     Indication: ASCITES
     Route: 048
  6. MORPHINE SULFATE [Concomitant]
     Indication: PAIN
     Route: 048
     Dates: start: 20110429
  7. DURAGESIC-100 [Concomitant]
     Indication: PAIN
     Dosage: TRANSDERMAL PATCH
     Route: 062

REACTIONS (3)
  - MUSCULAR WEAKNESS [None]
  - DEATH [None]
  - NEOPLASM MALIGNANT [None]
